FAERS Safety Report 7085980-0 (Version None)
Quarter: 2010Q4

REPORT INFORMATION
  Report Type: 
  Country: None (occurrence: None)
  Receive Date: 20101105
  Receipt Date: 20101026
  Transmission Date: 20110411
  Serious: Yes (Hospitalization)
  Sender: FDA-Public Use
  Company Number: ES-ELI_LILLY_AND_COMPANY-ES201010006042

PATIENT
  Sex: Male
  Weight: 60 kg

DRUGS (6)
  1. GEMCITABINE HCL [Suspect]
     Indication: NON-SMALL CELL LUNG CANCER
     Dosage: 2087 MG, OTHER
     Route: 042
     Dates: start: 20100820, end: 20101011
  2. CISPLATIN [Suspect]
     Indication: NON-SMALL CELL LUNG CANCER
     Dosage: 125 MG, OTHER
     Route: 042
     Dates: start: 20100820, end: 20101004
  3. PLAVIX [Concomitant]
     Dosage: 75 MG, DAILY (1/D)
  4. PARIET [Concomitant]
     Dosage: 20 MG, DAILY (1/D)
  5. NORVASC [Concomitant]
     Dosage: 5 MG, OTHER
  6. PAROXETINA [Concomitant]
     Dosage: 20 MG, DAILY (1/D)

REACTIONS (7)
  - ANAEMIA [None]
  - DIARRHOEA [None]
  - GENERAL PHYSICAL HEALTH DETERIORATION [None]
  - RENAL FAILURE [None]
  - RESPIRATORY TRACT INFECTION [None]
  - SEPSIS [None]
  - THROMBOCYTOPENIA [None]
